FAERS Safety Report 5474236-5 (Version None)
Quarter: 2007Q4

REPORT INFORMATION
  Report Type: 
  Country: None (occurrence: None)
  Receive Date: 20071002
  Receipt Date: 20070522
  Transmission Date: 20080405
  Serious: No
  Sender: FDA-Public Use
  Company Number: US-ASTRAZENECA-2007UW12653

PATIENT
  Age: 60 Year
  Sex: Female
  Weight: 59 kg

DRUGS (2)
  1. ARIMIDEX [Suspect]
     Indication: BREAST CANCER
     Dates: start: 20061025
  2. LOPRESSOR [Concomitant]

REACTIONS (2)
  - PHARYNGOLARYNGEAL PAIN [None]
  - PYREXIA [None]
